FAERS Safety Report 23345623 (Version 3)
Quarter: 2024Q1

REPORT INFORMATION
  Report Type: Spontaneous
  Country: IT (occurrence: IT)
  Receive Date: 20231228
  Receipt Date: 20240117
  Transmission Date: 20240410
  Serious: Yes (Other)
  Sender: FDA-Public Use
  Company Number: None

PATIENT

DRUGS (6)
  1. RILPIVIRINE [Suspect]
     Active Substance: RILPIVIRINE
     Indication: HIV infection
     Dosage: 900 MG (900 MG EVERY TWO MONTHS)
     Route: 030
     Dates: start: 20230315
  2. RILPIVIRINE [Suspect]
     Active Substance: RILPIVIRINE
     Dosage: 900 MG (900 MG EVERY TWO MONTHS)
     Route: 030
     Dates: start: 20231015, end: 20231015
  3. RILPIVIRINE [Suspect]
     Active Substance: RILPIVIRINE
     Dosage: 900 MG (900 MG EVERY TWO MONTHS)
     Route: 030
     Dates: start: 20231215, end: 20231215
  4. VOCABRIA [Suspect]
     Active Substance: CABOTEGRAVIR SODIUM
     Indication: HIV infection
     Dosage: 600 MG (600 MG EVERY TWO MONTHS)
     Route: 030
     Dates: start: 20230315
  5. VOCABRIA [Suspect]
     Active Substance: CABOTEGRAVIR SODIUM
     Dosage: 600 MG (600 MG EVERY TWO MONTHS)
     Route: 030
     Dates: start: 20231015, end: 20231015
  6. VOCABRIA [Suspect]
     Active Substance: CABOTEGRAVIR SODIUM
     Dosage: 600 MG (600 MG EVERY TWO MONTHS)
     Route: 030
     Dates: start: 20231215, end: 20231215

REACTIONS (2)
  - Asthenia [Recovered/Resolved]
  - Mood altered [Recovered/Resolved]

NARRATIVE: CASE EVENT DATE: 20230301
